FAERS Safety Report 10510829 (Version 4)
Quarter: 2019Q1

REPORT INFORMATION
  Report Type: Report from Study
  Country: None (occurrence: BR)
  Receive Date: 20141010
  Receipt Date: 20190314
  Transmission Date: 20190417
  Serious: Yes (Hospitalization, Disabling, Other)
  Sender: FDA-Public Use
  Company Number: BR-ABBVIE-14K-020-1291655-00

PATIENT
  Age: 59 Year
  Sex: Male
  Weight: 63 kg

DRUGS (15)
  1. HUMIRA [Suspect]
     Active Substance: ADALIMUMAB
     Dosage: MAINTENANCE DOSES
     Route: 058
     Dates: end: 20151001
  2. HUMIRA [Suspect]
     Active Substance: ADALIMUMAB
     Dosage: MAINTENANCE DOSES
     Route: 058
     Dates: start: 20180815
  3. PROMETHAZINE [Concomitant]
     Active Substance: PROMETHAZINE\PROMETHAZINE HYDROCHLORIDE
     Indication: INSOMNIA
  4. HUMIRA [Suspect]
     Active Substance: ADALIMUMAB
     Indication: CROHN^S DISEASE
     Dosage: LOADING DOSE, WEEK 0
     Route: 058
     Dates: start: 20130617, end: 20130617
  5. CLONAZEPAM. [Concomitant]
     Active Substance: CLONAZEPAM
     Indication: INSOMNIA
  6. AMIODARONE [Concomitant]
     Active Substance: AMIODARONE
     Indication: ARRHYTHMIA
     Dates: start: 20180723
  7. HUMIRA [Suspect]
     Active Substance: ADALIMUMAB
     Dosage: LOADING DOSE, WEEK 2
     Route: 058
     Dates: start: 201307, end: 201307
  8. BROMAZEPAM [Concomitant]
     Active Substance: BROMAZEPAM
     Indication: SLEEP DISORDER THERAPY
     Route: 048
     Dates: start: 20070101
  9. HUMIRA [Suspect]
     Active Substance: ADALIMUMAB
     Dosage: MAINTENANCE DOSES
     Route: 058
     Dates: end: 201804
  10. MAREVAN [Suspect]
     Active Substance: WARFARIN SODIUM
     Indication: HYPERCOAGULATION
  11. CLONAZEPAM. [Concomitant]
     Active Substance: CLONAZEPAM
     Indication: SLEEP DISORDER THERAPY
     Route: 048
     Dates: start: 2007
  12. CILOSTAZOL. [Concomitant]
     Active Substance: CILOSTAZOL
     Indication: CARDIOVASCULAR DISORDER
     Route: 048
     Dates: start: 20140801
  13. SINVASTON [Concomitant]
     Indication: CEREBROVASCULAR ACCIDENT
  14. MAREVAN [Suspect]
     Active Substance: WARFARIN SODIUM
     Indication: CARDIOVASCULAR DISORDER
     Route: 048
     Dates: start: 201408, end: 201504
  15. PROMETHAZINE [Concomitant]
     Active Substance: PROMETHAZINE\PROMETHAZINE HYDROCHLORIDE
     Indication: SLEEP DISORDER THERAPY
     Route: 048
     Dates: start: 2007

REACTIONS (30)
  - Dysuria [Recovering/Resolving]
  - Peripheral embolism [Unknown]
  - Intestinal stenosis [Unknown]
  - Venous occlusion [Recovering/Resolving]
  - Peripheral artery occlusion [Recovered/Resolved]
  - Paraesthesia [Recovered/Resolved]
  - Pain in extremity [Recovered/Resolved]
  - Gastrointestinal pain [Recovered/Resolved]
  - Weight decreased [Recovered/Resolved]
  - Hypercoagulation [Recovering/Resolving]
  - Prostatomegaly [Unknown]
  - Post procedural infection [Unknown]
  - Large intestinal obstruction [Recovering/Resolving]
  - Incisional hernia [Recovered/Resolved]
  - Skin wound [Not Recovered/Not Resolved]
  - Peripheral swelling [Not Recovered/Not Resolved]
  - Pruritus allergic [Not Recovered/Not Resolved]
  - Dyschezia [Recovering/Resolving]
  - Drug ineffective [Unknown]
  - Abdominal hernia [Recovered/Resolved]
  - Hypoaesthesia [Recovered/Resolved]
  - Abdominal pain [Recovered/Resolved]
  - Prostate examination abnormal [Recovering/Resolving]
  - Pruritus [Not Recovered/Not Resolved]
  - Hypertension [Recovering/Resolving]
  - Large intestinal stenosis [Unknown]
  - Renal disorder [Unknown]
  - Venous occlusion [Unknown]
  - Drug hypersensitivity [Not Recovered/Not Resolved]
  - Wound [Not Recovered/Not Resolved]

NARRATIVE: CASE EVENT DATE: 2014
